FAERS Safety Report 17365391 (Version 1)
Quarter: 2020Q1

REPORT INFORMATION
  Report Type: Spontaneous
  Country: FR (occurrence: FR)
  Receive Date: 20200204
  Receipt Date: 20200204
  Transmission Date: 20200409
  Serious: Yes (Hospitalization)
  Sender: FDA-Public Use
  Company Number: FR-ACCORD-171464

PATIENT
  Age: 86 Year
  Sex: Female
  Weight: 81 kg

DRUGS (14)
  1. ALFUZOSIN [Suspect]
     Active Substance: ALFUZOSIN
     Indication: PRODUCT USED FOR UNKNOWN INDICATION
     Route: 048
  2. VIMPAT [Suspect]
     Active Substance: LACOSAMIDE
     Indication: ENCEPHALITIS
     Dosage: STRENGTH: 150 MG
     Route: 048
  3. HYDROCORTISONE. [Concomitant]
     Active Substance: HYDROCORTISONE
  4. PERINDOPRIL [Concomitant]
     Active Substance: PERINDOPRIL
  5. PRAVASTATIN. [Concomitant]
     Active Substance: PRAVASTATIN
  6. REPAGLINIDE. [Concomitant]
     Active Substance: REPAGLINIDE
  7. FOLIC ACID. [Concomitant]
     Active Substance: FOLIC ACID
  8. ESCITALOPRAM [Suspect]
     Active Substance: ESCITALOPRAM OXALATE
     Indication: ANXIETY
     Route: 048
     Dates: end: 20190512
  9. ZYMAD [Suspect]
     Active Substance: CHOLECALCIFEROL
     Indication: OSTEOPOROSIS
     Route: 048
     Dates: start: 20180530, end: 20190515
  10. DAFLON [Concomitant]
  11. DUROGESIC [Suspect]
     Active Substance: FENTANYL
     Indication: PAIN
     Route: 003
     Dates: start: 20190503
  12. LERCANIDIPINE [Concomitant]
     Active Substance: LERCANIDIPINE
  13. PRAZEPAM [Suspect]
     Active Substance: PRAZEPAM
     Indication: ANXIETY
     Route: 048
  14. FORSTEO [Suspect]
     Active Substance: TERIPARATIDE
     Indication: OSTEOPOROSIS
     Route: 058
     Dates: start: 201808, end: 20190511

REACTIONS (4)
  - Constipation [Recovered/Resolved]
  - Hypercalcaemia [Recovered/Resolved]
  - Hallucination, visual [Recovered/Resolved]
  - Confusional state [Recovered/Resolved]

NARRATIVE: CASE EVENT DATE: 201905
